FAERS Safety Report 18497972 (Version 1)
Quarter: 2020Q4

REPORT INFORMATION
  Report Type: Report from Study
  Country: DE (occurrence: DE)
  Receive Date: 20201112
  Receipt Date: 20201112
  Transmission Date: 20210114
  Serious: Yes (Other)
  Sender: FDA-Public Use
  Company Number: DE-AMGEN-DEUCT2020183160

PATIENT
  Age: 33 Year
  Sex: Female

DRUGS (8)
  1. ERENUMAB [Suspect]
     Active Substance: ERENUMAB
     Dosage: UNK
     Route: 058
     Dates: start: 20201102
  2. L-THYROXIN [LEVOTHYROXINE SODIUM] [Concomitant]
     Active Substance: LEVOTHYROXINE SODIUM
     Indication: HYPOTHYROIDISM
     Dosage: 112 MILLIGRAM
     Route: 065
     Dates: start: 2017
  3. ERENUMAB [Suspect]
     Active Substance: ERENUMAB
     Indication: MIGRAINE
     Dosage: 140 MILLIGRAM
     Route: 058
     Dates: start: 20200518, end: 20201005
  4. DESLORATADIN [Concomitant]
     Active Substance: DESLORATADINE
     Indication: PRURITUS
     Dosage: 10 MILLIGRAM
     Route: 065
     Dates: start: 2009
  5. DEKRISTOL [Concomitant]
     Active Substance: CHOLECALCIFEROL
     Indication: VITAMIN D DEFICIENCY
     Dosage: 20000 IE
     Route: 065
     Dates: start: 2009
  6. ESOMEPRAZOL CF [ESOMEPRAZOLE SODIUM] [Concomitant]
     Indication: HYPERCHLORHYDRIA
     Dosage: 20 MILLIGRAM
     Route: 065
     Dates: start: 2020
  7. PREGABALIN. [Concomitant]
     Active Substance: PREGABALIN
     Indication: PRURITUS
     Dosage: 100 MILLIGRAM
     Route: 065
     Dates: start: 2014
  8. FOSTER [PIROXICAM] [Concomitant]
     Indication: ASTHMA
     Dosage: 200/6 UG
     Route: 065
     Dates: start: 20200226

REACTIONS (1)
  - Tachycardia [Recovered/Resolved]

NARRATIVE: CASE EVENT DATE: 20201025
